FAERS Safety Report 5746792-0 (Version None)
Quarter: 2008Q2

REPORT INFORMATION
  Report Type: 
  Country: None (occurrence: None)
  Receive Date: 20080522
  Receipt Date: 20080213
  Transmission Date: 20081010
  Serious: Yes (Hospitalization, Other)
  Sender: FDA-Public Use
  Company Number: FR-PFIZER INC-2008013813

PATIENT
  Sex: Male
  Weight: 80 kg

DRUGS (1)
  1. TAHOR [Suspect]
     Indication: BLOOD CHOLESTEROL
     Route: 048
     Dates: start: 19980101, end: 20080124

REACTIONS (1)
  - TENDON RUPTURE [None]
